FAERS Safety Report 16842192 (Version 1)
Quarter: 2019Q3

REPORT INFORMATION
  Report Type: Report from Study
  Country: None (occurrence: NL)
  Receive Date: 20190923
  Receipt Date: 20190923
  Transmission Date: 20191005
  Serious: Yes (Other)
  Sender: FDA-Public Use
  Company Number: NL-ABBVIE-19S-114-2704200-00

PATIENT
  Age: 42 Year
  Sex: Female
  Weight: 54 kg

DRUGS (4)
  1. DUODOPA [Suspect]
     Active Substance: CARBIDOPA\LEVODOPA
     Indication: PARKINSON^S DISEASE
     Dosage: MD: 5.5ML, CD: 3ML, ED: 4ML.
     Route: 050
     Dates: start: 20181029
  2. DUODOPA [Suspect]
     Active Substance: CARBIDOPA\LEVODOPA
     Dosage: MD 6.5, CD 3.2, ED 4.0
     Route: 050
  3. BISACODYL. [Concomitant]
     Active Substance: BISACODYL
     Indication: PRODUCT USED FOR UNKNOWN INDICATION
  4. DUODOPA [Suspect]
     Active Substance: CARBIDOPA\LEVODOPA
     Dosage: MD 5.0, CD NIGHT 1.8, ED NIGHT 2.0 CD DAY 2.5, ED DAY 1.0
     Route: 050

REACTIONS (23)
  - Cognitive disorder [Not Recovered/Not Resolved]
  - Frustration tolerance decreased [Not Recovered/Not Resolved]
  - Dyschezia [Unknown]
  - Feeding disorder [Recovered/Resolved]
  - Hallucination [Unknown]
  - Loss of personal independence in daily activities [Not Recovered/Not Resolved]
  - Abnormal faeces [Not Recovered/Not Resolved]
  - Memory impairment [Not Recovered/Not Resolved]
  - Sleep disorder [Not Recovered/Not Resolved]
  - Freezing phenomenon [Unknown]
  - Dyskinesia [Unknown]
  - Device loosening [Unknown]
  - Anxiety [Unknown]
  - Sleep disorder due to general medical condition, insomnia type [Unknown]
  - Disturbance in attention [Not Recovered/Not Resolved]
  - Aphasia [Not Recovered/Not Resolved]
  - Deep brain stimulation [Recovering/Resolving]
  - Weight decreased [Recovered/Resolved]
  - Unevaluable event [Unknown]
  - Enteral nutrition [Unknown]
  - Emotional disorder [Not Recovered/Not Resolved]
  - Tremor [Unknown]
  - On and off phenomenon [Unknown]

NARRATIVE: CASE EVENT DATE: 20190716
